FAERS Safety Report 9220235 (Version 2)
Quarter: 2013Q2

REPORT INFORMATION
  Report Type: Spontaneous
  Country: US (occurrence: US)
  Receive Date: 20130409
  Receipt Date: 20130416
  Transmission Date: 20140414
  Serious: Yes (Other)
  Sender: FDA-Public Use
  Company Number: US-VERTEX PHARMACEUTICALS INC.-2013-004610

PATIENT
  Age: 45 Year
  Sex: Female

DRUGS (8)
  1. INCIVEK [Suspect]
     Indication: HEPATITIS C
     Dosage: 750 MG, TID
     Route: 048
     Dates: start: 20121116
  2. PEGINTERFERON [Suspect]
     Indication: HEPATITIS C
     Dosage: 180 ?G, QW
     Route: 058
     Dates: start: 20121116
  3. RIBAVIRIN [Suspect]
     Indication: HEPATITIS C
     Dosage: 600 MG AM AND 800 MG PM
     Route: 048
     Dates: start: 20121116
  4. HUMULIN R [Concomitant]
  5. HYOSCYAMINE [Concomitant]
     Indication: ABDOMINAL PAIN
     Dosage: 1-2, PRN
     Route: 060
  6. NYQUIL [Concomitant]
     Dosage: UNK, PRN
  7. OMEPRAZOLE [Concomitant]
     Dosage: 20 MG, QD
  8. BENADRYL                           /00000402/ [Concomitant]
     Dosage: 25 MG, PRN

REACTIONS (1)
  - Cerebrovascular accident [Not Recovered/Not Resolved]
